FAERS Safety Report 4878803-9 (Version None)
Quarter: 2006Q1

REPORT INFORMATION
  Report Type: 
  Country: None (occurrence: None)
  Receive Date: 20060112
  Receipt Date: 20051117
  Transmission Date: 20060701
  Serious: No
  Sender: FDA-Public Use
  Company Number: US-GLAXOSMITHKLINE-A0582761A

PATIENT
  Age: 53 Year
  Sex: Male
  Weight: 70.9 kg

DRUGS (4)
  1. BEXXAR [Suspect]
     Indication: NON-HODGKIN'S LYMPHOMA
     Route: 042
     Dates: start: 20051110
  2. DIPHENHYDRAMINE [Concomitant]
  3. ACETAMINOPHEN [Concomitant]
  4. DECADRON [Concomitant]
     Route: 042

REACTIONS (3)
  - ANXIETY [None]
  - PRURITUS [None]
  - RASH [None]
